FAERS Safety Report 13510450 (Version 2)
Quarter: 2017Q2

REPORT INFORMATION
  Report Type: Spontaneous
  Country: US (occurrence: US)
  Receive Date: 20170503
  Receipt Date: 20170627
  Transmission Date: 20170830
  Serious: No
  Sender: FDA-Public Use
  Company Number: US-BAYER-2017-083880

PATIENT
  Age: 61 Year
  Sex: Female

DRUGS (1)
  1. BETASERON [Suspect]
     Active Substance: INTERFERON BETA-1B
     Indication: MULTIPLE SCLEROSIS
     Dosage: 0.3 MG, UNK
     Dates: start: 1995

REACTIONS (5)
  - Influenza like illness [None]
  - Injection site pain [None]
  - Thyroid hormones decreased [None]
  - Injection site mass [None]
  - Injection site swelling [None]

NARRATIVE: CASE EVENT DATE: 201705
